FAERS Safety Report 10035892 (Version 1)
Quarter: 2014Q1

REPORT INFORMATION
  Report Type: Spontaneous
  Country: US (occurrence: US)
  Receive Date: 20140325
  Receipt Date: 20140325
  Transmission Date: 20141002
  Serious: Yes (Hospitalization)
  Sender: FDA-Public Use
  Company Number: US-PFIZER INC-2014082871

PATIENT
  Age: 62 Year
  Sex: Male
  Weight: 74.83 kg

DRUGS (6)
  1. IBUPROFEN [Suspect]
     Indication: ARTHRALGIA
     Dosage: UNK
     Route: 048
  2. OMEPRAZOLE [Concomitant]
  3. SIMVASTATIN [Concomitant]
     Indication: BLOOD CHOLESTEROL INCREASED
  4. TRIAMTERENE [Concomitant]
  5. POTASSIUM [Concomitant]
  6. ASPIRIN [Concomitant]

REACTIONS (3)
  - Blood test abnormal [Recovered/Resolved]
  - Fatigue [Unknown]
  - Drug ineffective [Unknown]
